FAERS Safety Report 15009450 (Version 1)
Quarter: 2018Q2

REPORT INFORMATION
  Report Type: Report from Study
  Country: ES (occurrence: ES)
  Receive Date: 20180614
  Receipt Date: 20180614
  Transmission Date: 20180711
  Serious: Yes (Hospitalization, Other)
  Sender: FDA-Public Use
  Company Number: ES-TEVA-2018-ES-906414

PATIENT
  Age: 75 Year
  Sex: Male
  Weight: 74 kg

DRUGS (23)
  1. IRINOTECAN [Suspect]
     Active Substance: IRINOTECAN
     Dates: start: 20140506, end: 20140506
  2. 5-FU [Suspect]
     Active Substance: FLUOROURACIL
     Route: 040
     Dates: start: 20140422
  3. 5-FU [Suspect]
     Active Substance: FLUOROURACIL
     Route: 040
     Dates: start: 20140610, end: 20140610
  4. AFLIBERCEPT [Suspect]
     Active Substance: AFLIBERCEPT
     Route: 041
     Dates: start: 20140610, end: 20140610
  5. AFLIBERCEPT [Suspect]
     Active Substance: AFLIBERCEPT
     Route: 041
     Dates: start: 20140422, end: 20140422
  6. ZALTRAP [Suspect]
     Active Substance: ZIV-AFLIBERCEPT
     Indication: COLORECTAL CANCER METASTATIC
     Dosage: LAS DOS PRIMERAS DOSIS 328 MG Y 240 MG LOS DOS ULTIMOS
     Route: 041
     Dates: start: 20140506, end: 20140506
  7. IRINOTECAN [Suspect]
     Active Substance: IRINOTECAN
     Route: 041
     Dates: start: 20140520, end: 20140520
  8. 5-FU [Suspect]
     Active Substance: FLUOROURACIL
     Route: 040
     Dates: start: 20140506
  9. OMEPRAZOLE. [Concomitant]
     Active Substance: OMEPRAZOLE
     Indication: THERAPEUTIC PROCEDURE
     Route: 065
     Dates: start: 20140702
  10. IRINOTECAN [Suspect]
     Active Substance: IRINOTECAN
     Indication: COLORECTAL CANCER METASTATIC
     Route: 041
     Dates: start: 20140610, end: 20140610
  11. LEUCOVORIN. [Suspect]
     Active Substance: LEUCOVORIN
     Indication: COLORECTAL CANCER METASTATIC
     Route: 041
     Dates: start: 20140520, end: 20140520
  12. LEUCOVORIN. [Suspect]
     Active Substance: LEUCOVORIN
     Route: 041
     Dates: start: 20140422, end: 20140422
  13. LOPERAMIDE [Concomitant]
     Active Substance: LOPERAMIDE
     Indication: THERAPEUTIC PROCEDURE
     Route: 065
     Dates: start: 20140422
  14. IRINOTECAN [Suspect]
     Active Substance: IRINOTECAN
     Dosage: LAS DOS PRIMERAS DOSIS 328 MGY 240MG LOS DOS ULTIMOS
     Route: 041
     Dates: start: 20140422, end: 20140422
  15. 5-FU [Suspect]
     Active Substance: FLUOROURACIL
     Dosage: LAS DOS PRIMERAS DOSIS 328 MG Y 240 MG LOS DOS ULTIMOS
     Route: 040
     Dates: start: 20140422, end: 20140610
  16. 5-FU [Suspect]
     Active Substance: FLUOROURACIL
     Route: 040
     Dates: start: 20140520
  17. AFLIBERCEPT [Suspect]
     Active Substance: AFLIBERCEPT
     Indication: COLORECTAL CANCER METASTATIC
     Route: 041
     Dates: start: 20140520, end: 20140520
  18. 5-FU [Suspect]
     Active Substance: FLUOROURACIL
     Indication: COLORECTAL CANCER METASTATIC
     Route: 040
     Dates: start: 20140520, end: 20140520
  19. 5-FU [Suspect]
     Active Substance: FLUOROURACIL
     Route: 040
     Dates: start: 20140610
  20. LEUCOVORIN. [Suspect]
     Active Substance: LEUCOVORIN
     Route: 041
     Dates: start: 20140506, end: 20140506
  21. LEUCOVORIN. [Suspect]
     Active Substance: LEUCOVORIN
     Route: 041
     Dates: start: 20140610, end: 20140610
  22. 5-FU [Suspect]
     Active Substance: FLUOROURACIL
     Route: 040
     Dates: start: 20140506, end: 20140506
  23. DIGOXINE [Concomitant]
     Active Substance: DIGOXIN
     Indication: THERAPEUTIC PROCEDURE
     Dosage: LAS DOS PRIMERAS DOSIS 328 MG Y 240 MG LOS DOS ULTIMOS
     Route: 065
     Dates: start: 20140702

REACTIONS (6)
  - Decreased appetite [Recovered/Resolved]
  - Diarrhoea [Recovered/Resolved]
  - Pain in extremity [Recovered/Resolved]
  - Pulmonary embolism [Recovered/Resolved]
  - Deep vein thrombosis [Recovered/Resolved]
  - Renal failure [Not Recovered/Not Resolved]

NARRATIVE: CASE EVENT DATE: 20140610
